FAERS Safety Report 8214155-4 (Version None)
Quarter: 2012Q1

REPORT INFORMATION
  Report Type: 
  Country: None (occurrence: None)
  Receive Date: 20120315
  Receipt Date: 20120315
  Transmission Date: 20120608
  Serious: No
  Sender: FDA-Public Use
  Company Number: None

PATIENT
  Sex: Female
  Weight: 90.2658 kg

DRUGS (1)
  1. RECLAST [Suspect]
     Indication: OSTEOPOROSIS
     Dosage: 5 MG  ONCE I.V
     Route: 042
     Dates: start: 20110610

REACTIONS (5)
  - VOMITING [None]
  - CHROMATURIA [None]
  - MYALGIA [None]
  - HEADACHE [None]
  - NAUSEA [None]
